FAERS Safety Report 17172239 (Version 1)
Quarter: 2019Q4

REPORT INFORMATION
  Report Type: Spontaneous
  Country: US (occurrence: US)
  Receive Date: 20191218
  Receipt Date: 20191218
  Transmission Date: 20200122
  Serious: No
  Sender: FDA-Public Use
  Company Number: US-BAYER-2019-221149

PATIENT
  Sex: Female
  Weight: 164.49 kg

DRUGS (2)
  1. STIVARGA [Suspect]
     Active Substance: REGORAFENIB
     Dosage: UNK
     Dates: start: 20191023
  2. LONSURF [Suspect]
     Active Substance: TIPIRACIL HYDROCHLORIDE\TRIFLURIDINE
     Indication: RECTOSIGMOID CANCER
     Dosage: DAILY DOSE 80 MG (20MG/8.19MG)ON DAYS 1-5 AND 8-12
     Route: 048
     Dates: start: 20180717

REACTIONS (1)
  - Malaise [None]
